FAERS Safety Report 16356676 (Version 3)
Quarter: 2019Q2

REPORT INFORMATION
  Report Type: Report from Study
  Country: None (occurrence: CH)
  Receive Date: 20190527
  Receipt Date: 20190619
  Transmission Date: 20190711
  Serious: Yes (Hospitalization)
  Sender: FDA-Public Use
  Company Number: CH-ABBVIE-19S-151-2796283-00

PATIENT
  Sex: Female
  Weight: 49 kg

DRUGS (6)
  1. DUODOPA [Suspect]
     Active Substance: CARBIDOPA\LEVODOPA
     Dosage: MD: 6 ML; CRD: 2.8 ML/H; ED: 1 ML?16 H THERAPY
     Route: 050
     Dates: start: 20190522, end: 20190614
  2. DUODOPA [Suspect]
     Active Substance: CARBIDOPA\LEVODOPA
     Dosage: MD 6 ML, CD RATE DAY 2.8 ML/H, CONTINUOUS RATE NIGHT 2.0 ML/H, ED 1 ML 24 H THERAPY
     Route: 050
     Dates: start: 20190614
  3. UNKNOWN PRODUCT [Suspect]
     Active Substance: UNSPECIFIED INGREDIENT
     Indication: PRODUCT USED FOR UNKNOWN INDICATION
     Route: 065
  4. DUODOPA [Suspect]
     Active Substance: CARBIDOPA\LEVODOPA
     Dosage: MD: 6 ML; CRD: 2.4 ML/H; ED: 1 ML?16 H THERAPY
     Route: 050
     Dates: start: 20190207, end: 2019
  5. DUODOPA [Suspect]
     Active Substance: CARBIDOPA\LEVODOPA
     Dosage: MD: 6 ML; CRD: 2.6 ML/H; ED: 1 ML?16 H THERAPY
     Route: 050
     Dates: start: 2019, end: 20190522
  6. DUODOPA [Suspect]
     Active Substance: CARBIDOPA\LEVODOPA
     Indication: PARKINSON^S DISEASE
     Route: 050
     Dates: start: 20190121, end: 20190207

REACTIONS (7)
  - Weight decreased [Recovering/Resolving]
  - Akinesia [Not Recovered/Not Resolved]
  - Decreased appetite [Unknown]
  - Drug intolerance [Unknown]
  - Dehydration [Unknown]
  - Therapeutic product effect incomplete [Unknown]
  - Freezing phenomenon [Unknown]

NARRATIVE: CASE EVENT DATE: 2019
